FAERS Safety Report 16915205 (Version 1)
Quarter: 2019Q4

REPORT INFORMATION
  Report Type: Spontaneous
  Country: US (occurrence: US)
  Receive Date: 20191012
  Receipt Date: 20191012
  Transmission Date: 20200122
  Serious: Yes (Hospitalization)
  Sender: FDA-Public Use
  Company Number: None

PATIENT
  Age: 38 Year
  Sex: Female
  Weight: 60.3 kg

DRUGS (3)
  1. MAGNESIUM [Concomitant]
     Active Substance: MAGNESIUM
  2. ASSURED SEVERE CONGESTION NASAL RELIEF [Suspect]
     Active Substance: OXYMETAZOLINE HYDROCHLORIDE
     Indication: NASAL CONGESTION
     Dosage: ?          QUANTITY:2 SPRAY(S);OTHER ROUTE:NOSE SPRAY?
     Route: 045
     Dates: start: 20191012, end: 20191012
  3. NAPROXINE [Concomitant]

REACTIONS (8)
  - Disorientation [None]
  - Burning sensation [None]
  - Hypokinesia [None]
  - Nausea [None]
  - Communication disorder [None]
  - Eye pain [None]
  - Pain [None]
  - Migraine [None]

NARRATIVE: CASE EVENT DATE: 20191012
